FAERS Safety Report 16046580 (Version 1)
Quarter: 2019Q1

REPORT INFORMATION
  Report Type: Report from Study
  Country: US (occurrence: US)
  Receive Date: 20190307
  Receipt Date: 20190307
  Transmission Date: 20190418
  Serious: Yes (Hospitalization)
  Sender: FDA-Public Use
  Company Number: US-SA-2019SA058269

PATIENT
  Age: 71 Year
  Sex: Male

DRUGS (1)
  1. INSULIN GLARGINE [Suspect]
     Active Substance: INSULIN GLARGINE
     Indication: TYPE 2 DIABETES MELLITUS
     Dosage: 8 U IN AM, 18 U IN PM
     Route: 058

REACTIONS (9)
  - Malaise [Unknown]
  - Diabetic foot [Recovered/Resolved]
  - Osteomyelitis [Recovered/Resolved]
  - Pallor [Unknown]
  - Fall [Unknown]
  - Blood test abnormal [Unknown]
  - Localised infection [Not Recovered/Not Resolved]
  - Asthenia [Unknown]
  - Inappropriate schedule of product administration [Unknown]

NARRATIVE: CASE EVENT DATE: 201807
